FAERS Safety Report 11912230 (Version 3)
Quarter: 2016Q1

REPORT INFORMATION
  Report Type: Spontaneous
  Country: US (occurrence: US)
  Receive Date: 20160113
  Receipt Date: 20160310
  Transmission Date: 20160526
  Serious: Yes (Hospitalization)
  Sender: FDA-Public Use
  Company Number: US-GLENMARK PHARMACEUTICALS INC, USA.-2016GMK021797

PATIENT

DRUGS (3)
  1. CICLOPIROX OLAMINE. [Suspect]
     Active Substance: CICLOPIROX OLAMINE
     Indication: TINEA PEDIS
  2. SYNTHROID [Concomitant]
     Active Substance: LEVOTHYROXINE SODIUM
     Indication: HYPOTHYROIDISM
     Dosage: UNK, QD
     Route: 048
  3. CICLOPIROX OLAMINE. [Suspect]
     Active Substance: CICLOPIROX OLAMINE
     Indication: SKIN IRRITATION
     Dosage: UNK, QD
     Route: 061
     Dates: start: 201504, end: 201504

REACTIONS (5)
  - Condition aggravated [Recovered/Resolved]
  - Skin irritation [Recovered/Resolved]
  - Peripheral swelling [Recovered/Resolved]
  - Drug ineffective [Recovered/Resolved]
  - Inflammation [Recovered/Resolved]

NARRATIVE: CASE EVENT DATE: 201504
